FAERS Safety Report 10496788 (Version 1)
Quarter: 2014Q4

REPORT INFORMATION
  Report Type: Report from Study
  Country: BE (occurrence: BE)
  Receive Date: 20141006
  Receipt Date: 20141006
  Transmission Date: 20150528
  Serious: Yes (Hospitalization)
  Sender: FDA-Public Use
  Company Number: BE-BIOGENIDEC-2014BI099256

PATIENT
  Age: 38 Year
  Sex: Female

DRUGS (3)
  1. DAFALGAN / PARACETAMOL [Concomitant]
  2. AVONEX [Suspect]
     Active Substance: INTERFERON BETA-1A
     Indication: MULTIPLE SCLEROSIS
     Route: 030
     Dates: start: 20130802, end: 20131016
  3. IBUPROFEN. [Concomitant]
     Active Substance: IBUPROFEN

REACTIONS (4)
  - Multiple sclerosis [Unknown]
  - Hyperhidrosis [Unknown]
  - Bladder disorder [Unknown]
  - Decreased appetite [Unknown]
